FAERS Safety Report 9314315 (Version 1)
Quarter: 2013Q2

REPORT INFORMATION
  Report Type: Spontaneous
  Country: GB (occurrence: GB)
  Receive Date: 20130529
  Receipt Date: 20130529
  Transmission Date: 20140414
  Serious: Yes (Hospitalization)
  Sender: FDA-Public Use
  Company Number: GB-TEVA-371682ISR

PATIENT
  Age: 66 Year
  Sex: Male

DRUGS (12)
  1. GEMCITABINE [Suspect]
     Dates: start: 20120926, end: 20121128
  2. MORPHINE SULFATE [Suspect]
     Dosage: 100 MILLIGRAM DAILY;
     Route: 048
     Dates: start: 20121001
  3. CISPLATIN [Suspect]
     Route: 042
     Dates: start: 20120926, end: 20121121
  4. ORAMORPH [Suspect]
     Dosage: AS NEEDED
     Route: 048
     Dates: start: 20120918
  5. SUNITINIB MALATE [Suspect]
     Indication: TRANSITIONAL CELL CARCINOMA
     Dates: start: 20120927, end: 20120929
  6. PREDNISOLONE [Concomitant]
     Dosage: 7.5 MILLIGRAM DAILY;
     Route: 048
     Dates: start: 201009
  7. TAMSULOSIN [Concomitant]
     Dosage: 400 MILLIGRAM DAILY;
     Route: 048
     Dates: start: 20120401
  8. PARACETAMOL [Concomitant]
     Dosage: 4 GRAM DAILY;
     Route: 048
     Dates: start: 201206
  9. DULCOLAX [Concomitant]
     Route: 048
     Dates: start: 201206
  10. METOCLOPRAMIDE [Concomitant]
     Dosage: 30 - 60 MG A DAY
     Route: 048
     Dates: start: 20120921
  11. HYDROCORTISONE SODIUM SUCCINATE [Concomitant]
     Dosage: 2 - 4 MG A DAY
     Route: 048
     Dates: start: 20121011
  12. MOVICOL [Concomitant]
     Route: 048
     Dates: start: 20121010

REACTIONS (3)
  - Vomiting [Recovered/Resolved]
  - Nausea [Not Recovered/Not Resolved]
  - Deep vein thrombosis [Not Recovered/Not Resolved]
